FAERS Safety Report 5302059-6 (Version None)
Quarter: 2007Q2

REPORT INFORMATION
  Report Type: 
  Country: None (occurrence: None)
  Receive Date: 20070416
  Receipt Date: 20070416
  Transmission Date: 20071010
  Serious: Yes (Hospitalization)
  Sender: FDA-Public Use
  Company Number: None

PATIENT
  Age: 46 Year
  Sex: Male

DRUGS (1)
  1. RAMIPRIL [Suspect]
     Dosage: 2.5 MG  DAILY  PO
     Route: 048

REACTIONS (1)
  - ANGIOEDEMA [None]
